FAERS Safety Report 6099181-6 (Version None)
Quarter: 2009Q1

REPORT INFORMATION
  Report Type: 
  Country: None (occurrence: None)
  Receive Date: 20090302
  Receipt Date: 20090220
  Transmission Date: 20090719
  Serious: No
  Sender: FDA-Public Use
  Company Number: US-JNJCH-2009001262

PATIENT
  Sex: Male
  Weight: 72.6 kg

DRUGS (1)
  1. LISTERINE WHITENING VIBRANT WHITE PRE-BRUSH RINSE [Suspect]
     Indication: DENTAL CARE
     Dosage: TEXT:UNSPECIFIED ONCE
     Route: 050
     Dates: start: 20081226, end: 20081226

REACTIONS (5)
  - APHTHOUS STOMATITIS [None]
  - APPLICATION SITE ERYTHEMA [None]
  - APPLICATION SITE IRRITATION [None]
  - EATING DISORDER [None]
  - SPEECH DISORDER [None]
